FAERS Safety Report 5481855-9 (Version None)
Quarter: 2007Q4

REPORT INFORMATION
  Report Type: 
  Country: None (occurrence: None)
  Receive Date: 20071010
  Receipt Date: 20070607
  Transmission Date: 20080405
  Serious: No
  Sender: FDA-Public Use
  Company Number: US-BOEHRINGER INGELHEIM PHARMACEUTICALS, INC.-2007-BP-07816BP

PATIENT
  Sex: Female

DRUGS (7)
  1. AGGRENOX [Suspect]
     Indication: CEREBROVASCULAR ACCIDENT PROPHYLAXIS
     Route: 048
     Dates: start: 20070601, end: 20070605
  2. OMEPRAZOLE [Concomitant]
  3. DILTIAZEM [Concomitant]
  4. DITROPAN [Concomitant]
  5. NITROFURMAC [Concomitant]
  6. FOLIC ACID [Concomitant]
  7. CARISOPROPRODOL (SOMA) [Concomitant]
     Indication: BACK PAIN

REACTIONS (3)
  - ANOREXIA [None]
  - BACK PAIN [None]
  - HEADACHE [None]
